FAERS Safety Report 10617493 (Version 2)
Quarter: 2014Q4

REPORT INFORMATION
  Report Type: Report from Study
  Country: BR (occurrence: BR)
  Receive Date: 20141201
  Receipt Date: 20141204
  Transmission Date: 20150529
  Serious: Yes (Disabling)
  Sender: FDA-Public Use
  Company Number: BR-ABBVIE-14K-020-1312576-00

PATIENT
  Sex: Female
  Weight: 62 kg

DRUGS (4)
  1. PREDSIM [Concomitant]
     Active Substance: PREDNISOLONE
     Indication: PAIN
     Route: 048
     Dates: start: 200611
  2. HUMIRA [Suspect]
     Active Substance: ADALIMUMAB
     Indication: RHEUMATOID ARTHRITIS
     Route: 058
     Dates: start: 2011
  3. OMEPRAZOLE. [Concomitant]
     Active Substance: OMEPRAZOLE
     Indication: PROPHYLAXIS
  4. OMEPRAZOLE. [Concomitant]
     Active Substance: OMEPRAZOLE
     Indication: ABDOMINAL PAIN UPPER
     Route: 048
     Dates: start: 2010

REACTIONS (5)
  - Arthralgia [Recovering/Resolving]
  - Drug ineffective [Unknown]
  - Joint swelling [Recovering/Resolving]
  - Injection site pain [Not Recovered/Not Resolved]
  - Mobility decreased [Recovering/Resolving]

NARRATIVE: CASE EVENT DATE: 2011
